FAERS Safety Report 8106454-1 (Version None)
Quarter: 2012Q1

REPORT INFORMATION
  Report Type: 
  Country: None (occurrence: None)
  Receive Date: 20120202
  Receipt Date: 20120130
  Transmission Date: 20120608
  Serious: Yes (Other)
  Sender: FDA-Public Use
  Company Number: US-CELGENEUS-163-21880-11043224

PATIENT
  Sex: Male

DRUGS (7)
  1. REVLIMID [Suspect]
     Dosage: 5 MILLIGRAM
     Route: 048
     Dates: start: 20110519, end: 20110531
  2. COUMADIN [Suspect]
     Route: 065
  3. XANAX [Concomitant]
     Route: 065
  4. PAXIL [Concomitant]
     Route: 065
  5. REVLIMID [Suspect]
     Indication: MYELOFIBROSIS
     Dosage: 10 MILLIGRAM
     Route: 048
     Dates: start: 20110301
  6. REVLIMID [Suspect]
     Dosage: 5 MILLIGRAM
     Route: 048
     Dates: start: 20110801
  7. PREDNISONE TAB [Concomitant]
     Route: 065

REACTIONS (3)
  - NAUSEA [None]
  - HAEMORRHAGE URINARY TRACT [None]
  - FULL BLOOD COUNT DECREASED [None]
